FAERS Safety Report 6156355-3 (Version None)
Quarter: 2009Q2

REPORT INFORMATION
  Report Type: 
  Country: None (occurrence: None)
  Receive Date: 20090415
  Receipt Date: 20090407
  Transmission Date: 20091009
  Serious: Yes (Other)
  Sender: FDA-Public Use
  Company Number: US-GENENTECH-280849

PATIENT
  Sex: Female
  Weight: 29.8 kg

DRUGS (3)
  1. SOMATROPIN [Suspect]
     Indication: GROWTH HORMONE DEFICIENCY
     Dosage: 3 MG, UNK
     Route: 058
     Dates: start: 20080623
  2. CARNITOR [Concomitant]
     Indication: DRUG USE FOR UNKNOWN INDICATION
     Dosage: UNK
     Route: 048
     Dates: start: 20011001
  3. HISTRELIN [Concomitant]
     Indication: DRUG USE FOR UNKNOWN INDICATION
     Dosage: UNK
     Route: 058
     Dates: start: 20080228

REACTIONS (1)
  - PYOGENIC GRANULOMA [None]
